FAERS Safety Report 4907857-6 (Version None)
Quarter: 2006Q1

REPORT INFORMATION
  Report Type: 
  Country: None (occurrence: None)
  Receive Date: 20060210
  Receipt Date: 20050628
  Transmission Date: 20060701
  Serious: Yes (Hospitalization)
  Sender: FDA-Public Use
  Company Number: 200512179FR

PATIENT
  Age: 20 Year
  Sex: Female
  Weight: 51 kg

DRUGS (5)
  1. RIFATER [Suspect]
     Indication: PULMONARY TUBERCULOSIS
     Route: 048
     Dates: start: 20041005, end: 20041005
  2. URBANYL [Concomitant]
     Indication: EPILEPSY
     Route: 048
  3. SABRIL [Concomitant]
     Indication: EPILEPSY
     Route: 048
     Dates: start: 19950615
  4. LAMICTAL [Concomitant]
     Indication: EPILEPSY
     Route: 048
     Dates: start: 20030615
  5. KEPPRA [Concomitant]
     Indication: EPILEPSY
     Route: 048

REACTIONS (4)
  - CHILLS [None]
  - DRUG HYPERSENSITIVITY [None]
  - DYSPNOEA [None]
  - ERYTHEMA [None]
